FAERS Safety Report 15972509 (Version 2)
Quarter: 2019Q1

REPORT INFORMATION
  Report Type: Spontaneous
  Country: US (occurrence: US)
  Receive Date: 20190216
  Receipt Date: 20190310
  Transmission Date: 20190418
  Serious: Yes (Hospitalization, Other)
  Sender: FDA-Public Use
  Company Number: US-PRINSTON PHARMACEUTICAL INC.-2019PRN00197

PATIENT
  Sex: Female
  Weight: 126.98 kg

DRUGS (8)
  1. VALSARTAN. [Suspect]
     Active Substance: VALSARTAN
     Indication: HYPERTENSION
     Dosage: 80 MG, 2X/DAY
     Route: 048
  2. VALSARTAN. [Suspect]
     Active Substance: VALSARTAN
     Indication: ATRIAL FIBRILLATION
  3. OPDIVO [Concomitant]
     Active Substance: NIVOLUMAB
  4. VALSARTAN. [Suspect]
     Active Substance: VALSARTAN
     Indication: HYPERTENSION
     Dosage: 160 MG, 2X/DAY
     Route: 048
     Dates: start: 201804
  5. VALSARTAN. [Suspect]
     Active Substance: VALSARTAN
     Indication: ATRIAL FIBRILLATION
  6. UNSPECIFIED MEDICATION FOR ATRIAL FIBRILLATION [Concomitant]
  7. METFORMIN [Concomitant]
     Active Substance: METFORMIN HYDROCHLORIDE
     Indication: DIABETES MELLITUS
  8. HIGH THYROID PILL [Concomitant]

REACTIONS (4)
  - Renal cancer recurrent [Unknown]
  - Lung neoplasm malignant [Unknown]
  - Recalled product administered [Recovered/Resolved]
  - Renal cancer [Recovered/Resolved]

NARRATIVE: CASE EVENT DATE: 2010
